FAERS Safety Report 5407107-0 (Version None)
Quarter: 2007Q3

REPORT INFORMATION
  Report Type: 
  Country: None (occurrence: None)
  Receive Date: 20070807
  Receipt Date: 20070731
  Transmission Date: 20080115
  Serious: Yes (Hospitalization)
  Sender: FDA-Public Use
  Company Number: A0668198A

PATIENT
  Sex: Female

DRUGS (1)
  1. DIGIBIND [Suspect]
     Dosage: 7VIAL UNKNOWN
     Route: 065

REACTIONS (3)
  - CARDIOACTIVE DRUG LEVEL INCREASED [None]
  - NAUSEA [None]
  - VOMITING [None]
